FAERS Safety Report 9330210 (Version 2)
Quarter: 2013Q4

REPORT INFORMATION
  Report Type: Spontaneous
  Country: US (occurrence: US)
  Receive Date: 20130604
  Receipt Date: 20131011
  Transmission Date: 20140711
  Serious: Yes (Death, Hospitalization)
  Sender: FDA-Public Use
  Company Number: US-B.I. PHARMACEUTICALS,INC./RIDGEFIELD-2013-BI-15509BP

PATIENT
  Age: 56 Year
  Sex: Male

DRUGS (5)
  1. SPIRIVA [Suspect]
     Indication: CHRONIC OBSTRUCTIVE PULMONARY DISEASE
     Dosage: 18 MCG
     Route: 055
  2. PLAVIX [Concomitant]
  3. LISINOPRIL [Concomitant]
  4. CARDIOL [Concomitant]
  5. CHOLESTEROL LOWERING DRUGS [Concomitant]

REACTIONS (5)
  - Subdural haematoma [Fatal]
  - Cardio-respiratory arrest [Fatal]
  - Lung adenocarcinoma [Fatal]
  - Coronary artery disease [Fatal]
  - Dysuria [Unknown]
